FAERS Safety Report 5019322-9 (Version None)
Quarter: 2006Q2

REPORT INFORMATION
  Report Type: 
  Country: None (occurrence: None)
  Receive Date: 20060606
  Receipt Date: 20060525
  Transmission Date: 20061013
  Serious: Yes (Other)
  Sender: FDA-Public Use
  Company Number: TR-ROCHE-449280

PATIENT
  Age: 50 Year
  Sex: Female

DRUGS (3)
  1. XELODA [Suspect]
     Indication: DRUG USE FOR UNKNOWN INDICATION
     Route: 065
     Dates: start: 20060515, end: 20060515
  2. ELOXATIN [Suspect]
     Route: 042
     Dates: start: 20060515, end: 20060515
  3. SETRON [Suspect]
     Indication: ANTIEMETIC SUPPORTIVE CARE
     Route: 065
     Dates: start: 20060515, end: 20060515

REACTIONS (3)
  - ANAPHYLACTIC SHOCK [None]
  - CYANOSIS [None]
  - DYSPNOEA [None]
